FAERS Safety Report 7300509-7 (Version None)
Quarter: 2011Q1

REPORT INFORMATION
  Report Type: 
  Country: None (occurrence: None)
  Receive Date: 20110217
  Receipt Date: 20110210
  Transmission Date: 20110831
  Serious: No
  Sender: FDA-Public Use
  Company Number: US-BIOGENIDEC-2011BI005445

PATIENT
  Sex: Female

DRUGS (2)
  1. AVONEX [Suspect]
     Indication: MULTIPLE SCLEROSIS
     Route: 030
     Dates: start: 20000601
  2. LACTULOSE [Concomitant]

REACTIONS (8)
  - PERONEAL NERVE PALSY [None]
  - FAECAL INCONTINENCE [None]
  - ARTHRALGIA [None]
  - MUSCULAR WEAKNESS [None]
  - ANKLE FRACTURE [None]
  - VESTIBULAR DISORDER [None]
  - BALANCE DISORDER [None]
  - HYPOTHYROIDISM [None]
